FAERS Safety Report 14744966 (Version 2)
Quarter: 2018Q2

REPORT INFORMATION
  Report Type: Spontaneous
  Country: US (occurrence: US)
  Receive Date: 20180411
  Receipt Date: 20180413
  Transmission Date: 20180711
  Serious: No
  Sender: FDA-Public Use
  Company Number: US-PFIZER INC-2018146526

PATIENT
  Age: 64 Year
  Sex: Female
  Weight: 79.83 kg

DRUGS (2)
  1. ZOLOFT [Suspect]
     Active Substance: SERTRALINE HYDROCHLORIDE
     Indication: NEUROTRANSMITTER LEVEL ALTERED
     Dosage: UNK, 1X/DAY  (HALF TABLET ONCE DAILY)
     Route: 048
     Dates: start: 201803, end: 201803
  2. ATIVAN [Interacting]
     Active Substance: LORAZEPAM
     Indication: ANXIETY
     Dosage: 2 MG, AS NEEDED (UP TO 5 TIMES)

REACTIONS (4)
  - Drug interaction [Recovered/Resolved]
  - Somnolence [Unknown]
  - Asthenia [Unknown]
  - Feeling abnormal [Unknown]

NARRATIVE: CASE EVENT DATE: 201803
